FAERS Safety Report 9194350 (Version 1)
Quarter: 2013Q1

REPORT INFORMATION
  Report Type: Spontaneous
  Country: US (occurrence: US)
  Receive Date: 20130327
  Receipt Date: 20130327
  Transmission Date: 20140127
  Serious: Yes (Other)
  Sender: FDA-Public Use
  Company Number: US-RB-051450-13

PATIENT
  Age: 36 Year
  Sex: Female

DRUGS (5)
  1. SUBOXONE TABLET [Suspect]
     Indication: DRUG DEPENDENCE
     Route: 060
     Dates: start: 2009
  2. SUBOXONE FILM [Suspect]
     Indication: DRUG DEPENDENCE
     Dosage: SUBOXONE FILM
     Route: 060
  3. CLONAZEPAM [Concomitant]
     Indication: ANXIETY
     Dosage: DOSING FREQUENCY: DAILY
     Route: 048
  4. CLONAZEPAM [Concomitant]
     Indication: POST-TRAUMATIC STRESS DISORDER
     Dosage: DOSING FREQUENCY: DAILY
     Route: 048
  5. LEXAPRO [Concomitant]
     Indication: DEPRESSION
     Dosage: DOSING FREQUANCY: DAILY, UNKNOWN DOSE
     Route: 048

REACTIONS (10)
  - Exposure during pregnancy [Recovered/Resolved]
  - Nausea [Recovered/Resolved]
  - Vomiting [Recovered/Resolved]
  - Asthenia [Recovered/Resolved]
  - Tachycardia [Recovered/Resolved]
  - Weight decreased [Recovered/Resolved]
  - Wrong technique in drug usage process [Not Recovered/Not Resolved]
  - Foetal distress syndrome [Recovered/Resolved]
  - Premature delivery [Recovered/Resolved]
  - Basedow^s disease [Not Recovered/Not Resolved]
